FAERS Safety Report 5421524-4 (Version None)
Quarter: 2007Q3

REPORT INFORMATION
  Report Type: 
  Country: None (occurrence: None)
  Receive Date: 20070817
  Receipt Date: 20070807
  Transmission Date: 20080115
  Serious: Yes (Other)
  Sender: FDA-Public Use
  Company Number: B0483360A

PATIENT
  Age: 25 Year
  Sex: Female

DRUGS (2)
  1. LITHIUM SALT (FORMULATION UNKNOWN) (GENERIC) (LITHIUM SALT) [Suspect]
  2. ZOTEPINE (FORMULATION UNKNOWN) (ZOTPINE) [Suspect]

REACTIONS (3)
  - 5-HYDROXYINDOLACETIC ACID INCREASED [None]
  - NEUROLEPTIC MALIGNANT SYNDROME [None]
  - NOREPINEPHRINE INCREASED [None]
